FAERS Safety Report 7290837-6 (Version None)
Quarter: 2011Q1

REPORT INFORMATION
  Report Type: 
  Country: None (occurrence: None)
  Receive Date: 20110214
  Receipt Date: 20110204
  Transmission Date: 20110831
  Serious: Yes (Hospitalization, Other)
  Sender: FDA-Public Use
  Company Number: US-ROCHE-448803

PATIENT
  Sex: Male
  Weight: 83.9 kg

DRUGS (2)
  1. ACCUTANE [Suspect]
     Route: 048
     Dates: start: 20010928, end: 20020201
  2. ACCUTANE [Suspect]
     Route: 048
     Dates: start: 20010830

REACTIONS (28)
  - DEPRESSION [None]
  - VIOLENCE-RELATED SYMPTOM [None]
  - BACK PAIN [None]
  - INFECTION [None]
  - COLITIS [None]
  - ARTHRALGIA [None]
  - POUCHITIS [None]
  - INSOMNIA [None]
  - HEADACHE [None]
  - ARTHRITIS [None]
  - ANAL FISTULA [None]
  - DIZZINESS [None]
  - DEEP VEIN THROMBOSIS [None]
  - FISTULA [None]
  - IRRITABLE BOWEL SYNDROME [None]
  - RECTAL ABSCESS [None]
  - ADJUSTMENT DISORDER [None]
  - PROCTOCOLITIS [None]
  - DYSPNOEA [None]
  - INFLAMMATORY BOWEL DISEASE [None]
  - SPOUSAL ABUSE [None]
  - ANGINA PECTORIS [None]
  - VISUAL IMPAIRMENT [None]
  - NECK PAIN [None]
  - COLITIS ULCERATIVE [None]
  - ANXIETY [None]
  - SOMNOLENCE [None]
  - PRURITUS [None]
